FAERS Safety Report 10442034 (Version 1)
Quarter: 2014Q3

REPORT INFORMATION
  Report Type: Spontaneous
  Country: US (occurrence: US)
  Receive Date: 20140909
  Receipt Date: 20140909
  Transmission Date: 20150326
  Serious: No
  Sender: FDA-Public Use
  Company Number: US-PFIZER INC-2014249035

PATIENT
  Age: 70 Year
  Sex: Male
  Weight: 59 kg

DRUGS (9)
  1. GABAPENTIN. [Suspect]
     Active Substance: GABAPENTIN
     Indication: NEURALGIA
     Dosage: 200 MG, UNK
     Dates: start: 201312
  2. FENTANYL. [Suspect]
     Active Substance: FENTANYL
     Indication: NEURALGIA
     Dosage: 12.5 UG, UNK
     Route: 062
     Dates: start: 2014
  3. FENTANYL. [Suspect]
     Active Substance: FENTANYL
     Dosage: 75 UG, UNK
     Route: 062
     Dates: end: 2014
  4. GABAPENTIN. [Suspect]
     Active Substance: GABAPENTIN
     Dosage: 400 MG, UNK
  5. FENTANYL. [Suspect]
     Active Substance: FENTANYL
     Dosage: 25 UG, UNK
     Route: 062
  6. GABAPENTIN. [Suspect]
     Active Substance: GABAPENTIN
     Dosage: 600 MG, UNK
  7. FENTANYL. [Suspect]
     Active Substance: FENTANYL
     Dosage: 50 UG, UNK
     Route: 062
  8. LIDOCAINE HYDROCHLORIDE. [Suspect]
     Active Substance: LIDOCAINE HYDROCHLORIDE
     Indication: NEURALGIA
     Dosage: PATCH
  9. GABAPENTIN. [Suspect]
     Active Substance: GABAPENTIN
     Dosage: 1000 MG, 2X/DAY
     Dates: end: 201402

REACTIONS (2)
  - Weight decreased [Unknown]
  - Drug ineffective [Unknown]

NARRATIVE: CASE EVENT DATE: 201312
